FAERS Safety Report 9491995 (Version 2)
Quarter: 2013Q3

REPORT INFORMATION
  Report Type: Spontaneous
  Country: US (occurrence: US)
  Receive Date: 20130830
  Receipt Date: 20130830
  Transmission Date: 20140515
  Serious: Yes (Hospitalization)
  Sender: FDA-Public Use
  Company Number: US-GILEAD-2013-0080431

PATIENT
  Sex: Female

DRUGS (6)
  1. LETAIRIS [Suspect]
     Indication: PULMONARY HYPERTENSION
     Dosage: 5 MG, QD
     Route: 048
     Dates: start: 20130705
  2. LETAIRIS [Suspect]
     Indication: SCLERODERMA
  3. FLOLAN [Concomitant]
  4. ADCIRCA [Concomitant]
  5. REMODULIN [Concomitant]
  6. WARFARIN [Concomitant]

REACTIONS (2)
  - Cardiac failure [Unknown]
  - Pulmonary arterial hypertension [Unknown]
